APPROVED DRUG PRODUCT: PYRIMETHAMINE
Active Ingredient: PYRIMETHAMINE
Strength: 25MG
Dosage Form/Route: TABLET;ORAL
Application: A211271 | Product #001
Applicant: ALVOGEN INC
Approved: Jul 27, 2021 | RLD: No | RS: No | Type: DISCN